FAERS Safety Report 25895895 (Version 4)
Quarter: 2025Q4

REPORT INFORMATION
  Report Type: Report from Study
  Country: US (occurrence: US)
  Receive Date: 20251008
  Receipt Date: 20251124
  Transmission Date: 20260117
  Serious: No
  Sender: AGIOS PHARMACEUTICALS
  Company Number: US-AGIOS-2509US04504

PATIENT
  Sex: Male

DRUGS (2)
  1. MITAPIVAT [Suspect]
     Active Substance: MITAPIVAT
     Indication: Pyruvate kinase deficiency anaemia
     Dosage: 5 MILLIGRAM, BID
     Route: 048
     Dates: start: 20250919
  2. MITAPIVAT [Suspect]
     Active Substance: MITAPIVAT
     Dosage: 14 MILLIGRAM, BID
     Route: 048
     Dates: start: 20250919, end: 202509

REACTIONS (13)
  - Peripheral swelling [Unknown]
  - Illness [Unknown]
  - Fatigue [Unknown]
  - Arthralgia [Unknown]
  - Malaise [Recovered/Resolved]
  - Dizziness [Recovered/Resolved]
  - Fall [Recovered/Resolved]
  - Nervousness [Recovered/Resolved]
  - Panic attack [Recovered/Resolved]
  - Blood sodium decreased [Unknown]
  - Blood bilirubin increased [Unknown]
  - Anxiety [Unknown]
  - Blood sodium decreased [Unknown]
